FAERS Safety Report 4545018-3 (Version None)
Quarter: 2005Q1

REPORT INFORMATION
  Report Type: 
  Country: None (occurrence: None)
  Receive Date: 20050105
  Receipt Date: 20041227
  Transmission Date: 20050727
  Serious: Yes (Hospitalization)
  Sender: FDA-Public Use
  Company Number: 2004JP002259

PATIENT
  Age: 31 Year
  Sex: Female
  Weight: 70 kg

DRUGS (11)
  1. SAWACILLIN [Suspect]
     Indication: DRUG USE FOR UNKNOWN INDICATION
     Dosage: 250MG THREE TIMES PER DAY
     Route: 048
     Dates: start: 20041013, end: 20041014
  2. METHERGINE [Suspect]
     Indication: DRUG USE FOR UNKNOWN INDICATION
     Route: 048
     Dates: start: 20041013, end: 20041014
  3. DASEN [Suspect]
     Indication: DRUG USE FOR UNKNOWN INDICATION
     Dosage: 5MG THREE TIMES PER DAY
     Route: 048
     Dates: start: 20041013, end: 20041014
  4. MARZULENE S [Suspect]
     Indication: DRUG USE FOR UNKNOWN INDICATION
     Dosage: 500MG THREE TIMES PER DAY
     Route: 048
     Dates: start: 20041013, end: 20041014
  5. MAGNESIUM OXIDE [Concomitant]
     Indication: DRUG USE FOR UNKNOWN INDICATION
  6. UTEMERIN [Concomitant]
     Indication: DRUG USE FOR UNKNOWN INDICATION
  7. CEFAMEZIN [Concomitant]
     Indication: DRUG USE FOR UNKNOWN INDICATION
  8. LAXOBERON [Concomitant]
     Indication: DRUG USE FOR UNKNOWN INDICATION
  9. MAGNESIUM SULFATE [Concomitant]
     Indication: DRUG USE FOR UNKNOWN INDICATION
  10. CHINESE TRADITIONAL MEDICINE [Concomitant]
     Indication: DRUG USE FOR UNKNOWN INDICATION
     Dates: start: 20041013
  11. L-GLUTAMINE [Concomitant]
     Indication: DRUG USE FOR UNKNOWN INDICATION
     Dates: start: 20041013

REACTIONS (7)
  - ALANINE AMINOTRANSFERASE INCREASED [None]
  - ASPARTATE AMINOTRANSFERASE INCREASED [None]
  - BLOOD CREATINE PHOSPHOKINASE INCREASED [None]
  - BLOOD LACTATE DEHYDROGENASE INCREASED [None]
  - ERYTHEMA [None]
  - PRURITUS [None]
  - RASH MACULAR [None]
